FAERS Safety Report 6483882-1 (Version None)
Quarter: 2009Q4

REPORT INFORMATION
  Report Type: 
  Country: None (occurrence: None)
  Receive Date: 20091209
  Receipt Date: 20090514
  Transmission Date: 20100525
  Serious: No
  Sender: FDA-Public Use
  Company Number: US-AMGEN-KDL346783

PATIENT
  Sex: Female

DRUGS (3)
  1. ENBREL [Suspect]
     Indication: RHEUMATOID ARTHRITIS
     Route: 058
     Dates: start: 20070908
  2. METHOTREXATE [Concomitant]
     Dates: start: 20040610
  3. FOLIC ACID [Concomitant]
     Dates: start: 20040610

REACTIONS (2)
  - CYST [None]
  - MASS [None]
